FAERS Safety Report 8053152-9 (Version None)
Quarter: 2012Q1

REPORT INFORMATION
  Report Type: 
  Country: None (occurrence: None)
  Receive Date: 20120118
  Receipt Date: 20120110
  Transmission Date: 20120608
  Serious: Yes (Hospitalization)
  Sender: FDA-Public Use
  Company Number: US-US-EMD SERONO, INC.-7106503

PATIENT
  Sex: Male

DRUGS (4)
  1. PROVIGIL [Concomitant]
     Indication: FATIGUE
  2. AMANTADINE HCL [Concomitant]
     Indication: FATIGUE
  3. HYDROGEN PEROXIDE SOLUTION [Concomitant]
     Indication: FATIGUE
     Dosage: 5 DROPS IN 8 OZ GLASS OF WATER
  4. REBIF [Suspect]
     Indication: MULTIPLE SCLEROSIS
     Route: 058
     Dates: start: 20080902

REACTIONS (3)
  - URINARY RETENTION [None]
  - MULTIPLE SCLEROSIS RELAPSE [None]
  - MOVEMENT DISORDER [None]
